FAERS Safety Report 19654316 (Version 1)
Quarter: 2021Q3

REPORT INFORMATION
  Report Type: Spontaneous
  Country: CN (occurrence: CN)
  Receive Date: 20210804
  Receipt Date: 20210804
  Transmission Date: 20211014
  Serious: Yes (Other)
  Sender: FDA-Public Use
  Company Number: CN-ORION CORPORATION ORION PHARMA-ENT 2021-0084

PATIENT
  Age: 80 Year
  Sex: Male
  Weight: 60 kg

DRUGS (5)
  1. BACLOFEN. [Suspect]
     Active Substance: BACLOFEN
     Indication: PAIN IN EXTREMITY
  2. RISPERIDONE. [Suspect]
     Active Substance: RISPERIDONE
     Indication: PARKINSON^S DISEASE
     Dosage: AT BEDTIME
     Route: 048
     Dates: start: 20200719, end: 20200722
  3. ENTACAPONE (TRADE NAME UNKNOWN) [Suspect]
     Active Substance: ENTACAPONE
     Indication: PARKINSON^S DISEASE
     Route: 048
     Dates: start: 20200719, end: 20200722
  4. BACLOFEN. [Suspect]
     Active Substance: BACLOFEN
     Indication: PARKINSON^S DISEASE
     Route: 048
     Dates: start: 20200719, end: 20200722
  5. SODIUM VALPROATE [Suspect]
     Active Substance: VALPROATE SODIUM
     Indication: PARKINSON^S DISEASE
     Route: 048
     Dates: start: 20200719, end: 20200722

REACTIONS (4)
  - Urinary incontinence [Recovering/Resolving]
  - Blood pressure increased [Recovering/Resolving]
  - Altered state of consciousness [Recovering/Resolving]
  - Syncope [Recovering/Resolving]

NARRATIVE: CASE EVENT DATE: 20210722
